FAERS Safety Report 22035863 (Version 3)
Quarter: 2023Q1

REPORT INFORMATION
  Report Type: Report from Study
  Country: US (occurrence: US)
  Receive Date: 20230224
  Receipt Date: 20230321
  Transmission Date: 20230418
  Serious: Yes (Death)
  Sender: FDA-Public Use
  Company Number: US-PFIZER INC-PV202300033461

PATIENT
  Age: 64 Year
  Sex: Male
  Weight: 55.8 kg

DRUGS (2)
  1. PALBOCICLIB [Suspect]
     Active Substance: PALBOCICLIB
     Indication: Squamous cell carcinoma of head and neck
     Dosage: 125 MG, QD D1-21 OF 28-DAY CYCLE
     Route: 048
     Dates: start: 20221227, end: 20230213
  2. CETUXIMAB [Suspect]
     Active Substance: CETUXIMAB
     Dosage: 408 MG, QW
     Route: 042
     Dates: start: 20221227, end: 20230214

REACTIONS (1)
  - Neoplasm progression [Fatal]

NARRATIVE: CASE EVENT DATE: 20230218
